FAERS Safety Report 8614038-1 (Version None)
Quarter: 2012Q2

REPORT INFORMATION
  Report Type: 
  Country: None (occurrence: None)
  Receive Date: 20120423
  Receipt Date: 20100108
  Transmission Date: 20120825
  Serious: Yes (Other)
  Sender: FDA-Public Use
  Company Number: PHEH2009US04375

PATIENT
  Age: 32 Year
  Sex: Male
  Weight: 51.7 kg

DRUGS (2)
  1. EXJADE [Suspect]
     Indication: THALASSAEMIA BETA
     Dosage: 1000 MG, QD, ORAL ; 500MG DAILY
     Route: 048
     Dates: start: 20090420, end: 20091008
  2. EXJADE [Suspect]
     Indication: IRON OVERLOAD
     Dosage: 1000 MG, QD, ORAL ; 500MG DAILY
     Route: 048
     Dates: start: 20090420, end: 20091008

REACTIONS (4)
  - LIVER FUNCTION TEST ABNORMAL [None]
  - DIARRHOEA [None]
  - BLOOD CREATININE INCREASED [None]
  - RENAL IMPAIRMENT [None]
